FAERS Safety Report 24883028 (Version 1)
Quarter: 2025Q1

REPORT INFORMATION
  Report Type: Spontaneous
  Country: ES (occurrence: ES)
  Receive Date: 20250124
  Receipt Date: 20250124
  Transmission Date: 20250409
  Serious: Yes (Other)
  Sender: MYLAN
  Company Number: ES-ZAMBON-202500067ESP

PATIENT
  Age: 47 Year
  Sex: Female

DRUGS (3)
  1. ACETAMINOPHEN [Suspect]
     Active Substance: ACETAMINOPHEN
     Indication: Headache
     Route: 065
  2. ACETAMINOPHEN [Suspect]
     Active Substance: ACETAMINOPHEN
     Indication: Menstrual discomfort
  3. CLOPERASTINE HYDROCHLORIDE [Suspect]
     Active Substance: CLOPERASTINE HYDROCHLORIDE
     Indication: Cough
     Route: 048
     Dates: start: 20241229, end: 20241230

REACTIONS (2)
  - Angioedema [Recovering/Resolving]
  - Hypersensitivity [Recovering/Resolving]

NARRATIVE: CASE EVENT DATE: 20250102
